FAERS Safety Report 6270372-4 (Version None)
Quarter: 2009Q3

REPORT INFORMATION
  Report Type: 
  Country: None (occurrence: None)
  Receive Date: 20090716
  Receipt Date: 20090706
  Transmission Date: 20100115
  Serious: Yes (Other)
  Sender: FDA-Public Use
  Company Number: B0583843A

PATIENT
  Age: 62 Year
  Sex: Female

DRUGS (3)
  1. LAMOTRIGINE [Suspect]
     Indication: DEPRESSION
     Dosage: 25MG PER DAY
     Route: 065
  2. SERTRALINE [Suspect]
     Indication: DRUG USE FOR UNKNOWN INDICATION
     Dosage: 100MG PER DAY
     Route: 065
  3. MIRTAZAPINE [Suspect]
     Indication: DRUG USE FOR UNKNOWN INDICATION
     Dosage: 15MG AT NIGHT
     Route: 065

REACTIONS (12)
  - BLISTER [None]
  - C-REACTIVE PROTEIN ABNORMAL [None]
  - CHILLS [None]
  - ERYTHEMA [None]
  - INFLUENZA LIKE ILLNESS [None]
  - OROPHARYNGEAL PAIN [None]
  - PYREXIA [None]
  - RASH [None]
  - RASH MACULO-PAPULAR [None]
  - SKIN DISORDER [None]
  - STEVENS-JOHNSON SYNDROME [None]
  - STOMATITIS [None]
